FAERS Safety Report 5213214-8 (Version None)
Quarter: 2007Q1

REPORT INFORMATION
  Report Type: 
  Country: None (occurrence: None)
  Receive Date: 20070118
  Receipt Date: 20070118
  Transmission Date: 20070707
  Serious: Yes (Other)
  Sender: FDA-Public Use
  Company Number: None

PATIENT
  Sex: Female
  Weight: 55.7924 kg

DRUGS (3)
  1. VECTIBIX [Suspect]
     Indication: COLON CANCER METASTATIC
     Dosage: 360 MG EVERY 2 WEEKS IV DRIP
     Route: 041
     Dates: start: 20061027, end: 20061109
  2. VECTIBIX [Suspect]
     Indication: COLON CANCER METASTATIC
     Dosage: 360 MG EVERY 2 WEEKS IV DRIP
     Route: 041
     Dates: start: 20061130, end: 20061228
  3. FOLFOX [Concomitant]

REACTIONS (6)
  - DIARRHOEA [None]
  - HYPOMAGNESAEMIA [None]
  - MUCOSAL INFLAMMATION [None]
  - NAUSEA [None]
  - NO THERAPEUTIC RESPONSE [None]
  - VOMITING [None]
